FAERS Safety Report 16348945 (Version 2)
Quarter: 2020Q3

REPORT INFORMATION
  Report Type: Report from Study
  Country: FR (occurrence: FR)
  Receive Date: 20190523
  Receipt Date: 20200806
  Transmission Date: 20201102
  Serious: Yes (Hospitalization)
  Sender: FDA-Public Use
  Company Number: FR-SHIRE-FR201915968

PATIENT

DRUGS (8)
  1. TEDUGLUTIDE [Suspect]
     Active Substance: TEDUGLUTIDE
     Indication: SHORT-BOWEL SYNDROME
     Dosage: 0.05 MILLIGRAM/KILOGRAM (2.4 MILLIGRAM TED DAILY DOSE), 7 DOSES PER WEEK
     Route: 065
     Dates: start: 20170911
  2. CODEINE [Concomitant]
     Active Substance: CODEINE
     Indication: PRODUCT USED FOR UNKNOWN INDICATION
  3. OCTREOTIDE. [Concomitant]
     Active Substance: OCTREOTIDE
     Indication: SHORT-BOWEL SYNDROME
  4. GAVISCON [CALCIUM CARBONATE;SODIUM ALGINATE;SODIUM BICARBONATE] [Concomitant]
     Active Substance: CALCIUM CARBONATE\SODIUM ALGINATE\SODIUM BICARBONATE
     Indication: SHORT-BOWEL SYNDROME
  5. COLECALCIFEROL [Concomitant]
     Active Substance: CHOLECALCIFEROL
     Indication: SHORT-BOWEL SYNDROME
  6. TEDUGLUTIDE [Suspect]
     Active Substance: TEDUGLUTIDE
     Indication: SHORT-BOWEL SYNDROME
     Dosage: 0.05 MILLIGRAM/KILOGRAM (2.4 MILLIGRAM TED DAILY DOSE), 7 DOSES PER WEEK
     Route: 065
     Dates: start: 20170911
  7. TEDUGLUTIDE [Suspect]
     Active Substance: TEDUGLUTIDE
     Indication: SHORT-BOWEL SYNDROME
     Dosage: 0.05 MILLIGRAM/KILOGRAM (2.4 MILLIGRAM TED DAILY DOSE), 7 DOSES PER WEEK
     Route: 065
     Dates: start: 20170911
  8. TEDUGLUTIDE [Suspect]
     Active Substance: TEDUGLUTIDE
     Indication: SHORT-BOWEL SYNDROME
     Dosage: 0.05 MILLIGRAM/KILOGRAM (2.4 MILLIGRAM TED DAILY DOSE), 7 DOSES PER WEEK
     Route: 065
     Dates: start: 20170911

REACTIONS (1)
  - Vasodilatation [Recovered/Resolved]

NARRATIVE: CASE EVENT DATE: 20181001
